FAERS Safety Report 19962327 (Version 1)
Quarter: 2021Q4

REPORT INFORMATION
  Report Type: Spontaneous
  Country: US (occurrence: US)
  Receive Date: 20211018
  Receipt Date: 20211018
  Transmission Date: 20220303
  Serious: No
  Sender: FDA-Public Use
  Company Number: US-SUN PHARMACEUTICAL INDUSTRIES LTD-2021R1-305148

PATIENT
  Age: 74 Year
  Sex: Male

DRUGS (1)
  1. CAPECITABINE [Suspect]
     Active Substance: CAPECITABINE
     Indication: Product used for unknown indication
     Dosage: 1500 MILLIGRAM, BID/DAY
     Route: 065
     Dates: start: 20200402

REACTIONS (6)
  - Purulent discharge [Unknown]
  - Pain [Unknown]
  - Dry skin [Unknown]
  - Skin disorder [Unknown]
  - Skin exfoliation [Unknown]
  - Erythema [Unknown]
